FAERS Safety Report 10402271 (Version 1)
Quarter: 2014Q3

REPORT INFORMATION
  Report Type: Spontaneous
  Country: DK (occurrence: DE)
  Receive Date: 20140822
  Receipt Date: 20140822
  Transmission Date: 20150326
  Serious: Yes (Congenital Anomaly)
  Sender: FDA-Public Use
  Company Number: DE-FRI-1000070065

PATIENT
  Age: 0 Year
  Sex: Female
  Weight: .5 kg

DRUGS (3)
  1. CITALOPRAM [Suspect]
     Active Substance: CITALOPRAM HYDROBROMIDE
     Dosage: 40 MG
     Route: 064
     Dates: start: 20131029, end: 20140401
  2. FEMIBION [Concomitant]
     Active Substance: VITAMINS
     Route: 064
  3. CYTOTEC [Concomitant]
     Active Substance: MISOPROSTOL
     Route: 064
     Dates: start: 20140331, end: 20140331

REACTIONS (7)
  - Meningomyelocele [Not Recovered/Not Resolved]
  - Cerebral ventricle dilatation [Not Recovered/Not Resolved]
  - Abortion induced [None]
  - Spina bifida [Not Recovered/Not Resolved]
  - Talipes [Not Recovered/Not Resolved]
  - Arnold-Chiari malformation [Not Recovered/Not Resolved]
  - Foetal exposure during pregnancy [Not Recovered/Not Resolved]

NARRATIVE: CASE EVENT DATE: 20131029
